FAERS Safety Report 11256570 (Version 1)
Quarter: 2015Q3

REPORT INFORMATION
  Report Type: Spontaneous
  Country: US (occurrence: US)
  Receive Date: 20150709
  Receipt Date: 20150709
  Transmission Date: 20151125
  Serious: No
  Sender: FDA-Public Use
  Company Number: US-PURDUE-USA-2014-0117742

PATIENT
  Age: 32 Year
  Sex: Female

DRUGS (2)
  1. BUTRANS [Suspect]
     Active Substance: BUPRENORPHINE
     Dosage: 15 MCG/HR, WEEKLY
     Route: 062
     Dates: start: 20140903
  2. BUTRANS [Suspect]
     Active Substance: BUPRENORPHINE
     Indication: PAIN
     Dosage: 15 MCG/HR, WEEKLY
     Route: 062
     Dates: start: 201408, end: 20140903

REACTIONS (8)
  - Application site perspiration [Unknown]
  - Application site pruritus [Recovered/Resolved]
  - Application site dryness [Unknown]
  - Device leakage [Unknown]
  - Application site rash [Recovered/Resolved]
  - Drug effect decreased [Unknown]
  - Product adhesion issue [Unknown]
  - Application site vesicles [Unknown]

NARRATIVE: CASE EVENT DATE: 201408
